FAERS Safety Report 24662041 (Version 1)
Quarter: 2024Q4

REPORT INFORMATION
  Report Type: Spontaneous
  Country: CA (occurrence: CA)
  Receive Date: 20241125
  Receipt Date: 20241125
  Transmission Date: 20250115
  Serious: Yes (Other)
  Sender: SPECGX
  Company Number: CA-SPECGX-T202401513

PATIENT
  Age: 48 Year
  Sex: Male

DRUGS (3)
  1. METHADOSE [Suspect]
     Active Substance: METHADONE HYDROCHLORIDE
     Indication: Hepatitis C
     Dosage: UNK
     Route: 065
  2. FENTANYL [Suspect]
     Active Substance: FENTANYL
     Indication: Hepatitis C
     Dosage: UNK
     Route: 065
  3. GLECAPREVIR\PIBRENTASVIR [Suspect]
     Active Substance: GLECAPREVIR\PIBRENTASVIR
     Indication: Hepatitis C
     Dosage: 3 DOSAGE FORM, QD
     Route: 048

REACTIONS (2)
  - Hepatitis C [Unknown]
  - Drug ineffective for unapproved indication [Unknown]
